FAERS Safety Report 5215624-1 (Version None)
Quarter: 2007Q1

REPORT INFORMATION
  Report Type: 
  Country: None (occurrence: None)
  Receive Date: 20070123
  Receipt Date: 20070117
  Transmission Date: 20070707
  Serious: Yes (Other)
  Sender: FDA-Public Use
  Company Number: 2007UW00916

PATIENT
  Age: 29 Year
  Sex: Female
  Weight: 50 kg

DRUGS (4)
  1. RHINOCORT [Suspect]
     Indication: RHINITIS
     Dosage: 20 MG DAILY
     Route: 045
     Dates: start: 20061201, end: 20061201
  2. AMOXICILLIN [Concomitant]
     Indication: ANTIBIOTIC PROPHYLAXIS
     Dosage: ONCE DAILY
     Route: 048
     Dates: start: 20061201, end: 20061207
  3. NIMESULIDE [Concomitant]
     Indication: ANALGESIC EFFECT
     Dosage: ONCE DAILY
     Route: 048
     Dates: start: 20061201, end: 20061206
  4. PRIMALAN [Concomitant]
     Indication: ANTIALLERGIC THERAPY
     Dosage: ONCE DAILY
     Route: 048
     Dates: start: 20061201, end: 20061206

REACTIONS (4)
  - HEADACHE [None]
  - LACRIMATION INCREASED [None]
  - PHOTOPHOBIA [None]
  - VISION BLURRED [None]
